FAERS Safety Report 18179802 (Version 2)
Quarter: 2020Q3

REPORT INFORMATION
  Report Type: Report from Study
  Country: None (occurrence: US)
  Receive Date: 20200820
  Receipt Date: 20200827
  Transmission Date: 20201103
  Serious: Yes (Other)
  Sender: FDA-Public Use
  Company Number: US-ABBVIE-20K-163-3522535-00

PATIENT
  Age: 61 Year
  Sex: Male

DRUGS (12)
  1. VENCLEXTA [Suspect]
     Active Substance: VENETOCLAX
     Dosage: 50MG TAB FOR 7 DAYS
     Route: 048
     Dates: start: 20200706, end: 20200712
  2. CYANOCOBALAMIN. [Concomitant]
     Active Substance: CYANOCOBALAMIN
     Indication: PRODUCT USED FOR UNKNOWN INDICATION
  3. FERROUS SULFATE. [Concomitant]
     Active Substance: FERROUS SULFATE
     Indication: PRODUCT USED FOR UNKNOWN INDICATION
  4. KLOR?CON [Concomitant]
     Active Substance: POTASSIUM CHLORIDE
     Indication: PRODUCT USED FOR UNKNOWN INDICATION
  5. OXYCONTIN [Concomitant]
     Active Substance: OXYCODONE HYDROCHLORIDE
     Indication: PRODUCT USED FOR UNKNOWN INDICATION
  6. VENCLEXTA [Suspect]
     Active Substance: VENETOCLAX
     Dosage: 100MG TAB FOR 7 DAYS
     Route: 048
     Dates: start: 20200713, end: 20200719
  7. VENCLEXTA [Suspect]
     Active Substance: VENETOCLAX
     Dosage: 2?100MG TAB FOR 7 DAYS
     Route: 048
     Dates: start: 20200720, end: 20200726
  8. FUROSEMIDE. [Concomitant]
     Active Substance: FUROSEMIDE
     Indication: PRODUCT USED FOR UNKNOWN INDICATION
  9. VENCLEXTA [Suspect]
     Active Substance: VENETOCLAX
     Indication: CHRONIC LYMPHOCYTIC LEUKAEMIA
     Dosage: 2?10MG TAB FOR 7 DAYS
     Route: 048
     Dates: start: 20200629, end: 20200705
  10. LISINOPRIL. [Concomitant]
     Active Substance: LISINOPRIL
     Indication: PRODUCT USED FOR UNKNOWN INDICATION
  11. OMEPRAZOLE. [Concomitant]
     Active Substance: OMEPRAZOLE
     Indication: PRODUCT USED FOR UNKNOWN INDICATION
  12. AUGMENTIN [Concomitant]
     Active Substance: AMOXICILLIN\CLAVULANATE POTASSIUM
     Indication: PRODUCT USED FOR UNKNOWN INDICATION

REACTIONS (26)
  - Brain neoplasm [Unknown]
  - Feeling abnormal [Recovered/Resolved]
  - White blood cell count abnormal [Unknown]
  - White blood cell count decreased [Unknown]
  - Pain in extremity [Not Recovered/Not Resolved]
  - Aphasia [Unknown]
  - Benign prostatic hyperplasia [Unknown]
  - Chromaturia [Recovering/Resolving]
  - Animal scratch [Unknown]
  - Platelet count decreased [Unknown]
  - Joint swelling [Unknown]
  - Dizziness [Unknown]
  - Haemorrhage [Unknown]
  - Aphasia [Unknown]
  - Haematochezia [Unknown]
  - Back pain [Unknown]
  - Joint range of motion decreased [Unknown]
  - Nocturia [Unknown]
  - Sinusitis [Recovering/Resolving]
  - Glioma [Unknown]
  - Arthralgia [Unknown]
  - Insomnia [Recovered/Resolved]
  - Gait disturbance [Unknown]
  - Dysuria [Unknown]
  - Ear discomfort [Recovering/Resolving]
  - Diarrhoea [Unknown]

NARRATIVE: CASE EVENT DATE: 2020
